FAERS Safety Report 19195731 (Version 3)
Quarter: 2021Q2

REPORT INFORMATION
  Report Type: Spontaneous
  Country: PL (occurrence: PL)
  Receive Date: 20210429
  Receipt Date: 20210521
  Transmission Date: 20210717
  Serious: Yes (Other)
  Sender: FDA-Public Use
  Company Number: PL-PFIZER INC-2021429396

PATIENT
  Age: 4 Year
  Sex: Male

DRUGS (3)
  1. LEVETIRACETAM. [Suspect]
     Active Substance: LEVETIRACETAM
     Dosage: UNK
  2. L?CARNITINE [LEVOCARNITINE] [Concomitant]
     Active Substance: LEVOCARNITINE
  3. URSODEOXYCHOLIC ACID [Concomitant]
     Active Substance: URSODIOL

REACTIONS (8)
  - Metabolic acidosis [Recovering/Resolving]
  - Infection [Recovering/Resolving]
  - Hepatic function abnormal [Recovering/Resolving]
  - Cholestasis [Recovering/Resolving]
  - Apathy [Recovering/Resolving]
  - Hypoglycaemia [Recovering/Resolving]
  - Coagulopathy [Recovering/Resolving]
  - Somnolence [Recovering/Resolving]
